FAERS Safety Report 8474593-1 (Version None)
Quarter: 2012Q2

REPORT INFORMATION
  Report Type: 
  Country: None (occurrence: None)
  Receive Date: 20120628
  Receipt Date: 20120622
  Transmission Date: 20120825
  Serious: Yes (Death, Hospitalization, Disabling)
  Sender: FDA-Public Use
  Company Number: MX-SANOFI-AVENTIS-2012SA045165

PATIENT
  Age: 73 Year
  Sex: Male

DRUGS (2)
  1. LANTUS [Suspect]
     Indication: TYPE 2 DIABETES MELLITUS
     Route: 058
     Dates: end: 20120201
  2. GLIMEPIRIDE [Concomitant]
     Indication: TYPE 2 DIABETES MELLITUS
     Route: 048
     Dates: end: 20120201

REACTIONS (4)
  - MYOCARDIAL INFARCTION [None]
  - DIABETIC FOOT [None]
  - CONDITION AGGRAVATED [None]
  - DEPRESSED MOOD [None]
